FAERS Safety Report 7226951-0 (Version None)
Quarter: 2011Q1

REPORT INFORMATION
  Report Type: 
  Country: None (occurrence: None)
  Receive Date: 20110105
  Receipt Date: 20101227
  Transmission Date: 20110831
  Serious: Yes (Hospitalization)
  Sender: FDA-Public Use
  Company Number: 023862

PATIENT
  Age: 70 Year
  Sex: Female

DRUGS (2)
  1. KEPPRA [Suspect]
     Dosage: 500 MG BID, ORAL
     Route: 048
  2. EXCEGRAN [Concomitant]

REACTIONS (1)
  - DRUG ERUPTION [None]
